FAERS Safety Report 18686617 (Version 3)
Quarter: 2021Q2

REPORT INFORMATION
  Report Type: Spontaneous
  Country: AU (occurrence: AU)
  Receive Date: 20201230
  Receipt Date: 20210512
  Transmission Date: 20210717
  Serious: Yes (Hospitalization, Other)
  Sender: FDA-Public Use
  Company Number: AU-ABBVIE-20K-008-3710226-00

PATIENT
  Sex: Female

DRUGS (20)
  1. ROSUVASTATIN CALCIUM. [Concomitant]
     Active Substance: ROSUVASTATIN CALCIUM
     Indication: PRODUCT USED FOR UNKNOWN INDICATION
  2. RITONAVIR. [Suspect]
     Active Substance: RITONAVIR
     Indication: PRODUCT USED FOR UNKNOWN INDICATION
     Route: 048
  3. ZIDOVUDINE. [Suspect]
     Active Substance: ZIDOVUDINE
     Indication: HIV-ASSOCIATED NEUROCOGNITIVE DISORDER
     Route: 065
  4. ZIDOVUDINE. [Suspect]
     Active Substance: ZIDOVUDINE
     Indication: HIV-ASSOCIATED NEUROCOGNITIVE DISORDER
  5. ELVITEGRAVIR [Suspect]
     Active Substance: ELVITEGRAVIR
     Indication: HIV-ASSOCIATED NEUROCOGNITIVE DISORDER
     Route: 065
  6. GENVOYA [Suspect]
     Active Substance: COBICISTAT\ELVITEGRAVIR\EMTRICITABINE\TENOFOVIR ALAFENAMIDE FUMARATE
     Indication: HIV INFECTION
     Route: 065
     Dates: start: 201601
  7. ATENOLOL. [Concomitant]
     Active Substance: ATENOLOL
     Indication: PRODUCT USED FOR UNKNOWN INDICATION
  8. MIRTAZAPINE. [Concomitant]
     Active Substance: MIRTAZAPINE
     Indication: PRODUCT USED FOR UNKNOWN INDICATION
  9. THIAMINE HYDROCHLORIDE. [Concomitant]
     Active Substance: THIAMINE HYDROCHLORIDE
     Indication: PRODUCT USED FOR UNKNOWN INDICATION
  10. DARUNAVIR [Suspect]
     Active Substance: DARUNAVIR
     Indication: HIV INFECTION
     Route: 065
     Dates: start: 2012
  11. LAMIVUDINE. [Suspect]
     Active Substance: LAMIVUDINE
     Indication: HIV INFECTION
     Route: 065
  12. COBICISTAT [Suspect]
     Active Substance: COBICISTAT
     Indication: HIV-ASSOCIATED NEUROCOGNITIVE DISORDER
     Route: 065
  13. TENOFOVIR [Suspect]
     Active Substance: TENOFOVIR
     Indication: HIV-ASSOCIATED NEUROCOGNITIVE DISORDER
     Route: 065
  14. EFAVIRENZ. [Suspect]
     Active Substance: EFAVIRENZ
     Indication: HIV INFECTION
     Route: 065
  15. ABACAVIR SULFATE/LAMIVUDINE [Suspect]
     Active Substance: ABACAVIR SULFATE\LAMIVUDINE
     Indication: HIV INFECTION
     Route: 065
     Dates: start: 2012
  16. EMTRICITABINE [Suspect]
     Active Substance: EMTRICITABINE
     Indication: HIV-ASSOCIATED NEUROCOGNITIVE DISORDER
     Route: 065
  17. EMTRICITABINE [Suspect]
     Active Substance: EMTRICITABINE
     Indication: HIV-ASSOCIATED NEUROCOGNITIVE DISORDER
  18. ASPIRIN. [Concomitant]
     Active Substance: ASPIRIN
     Indication: MYOCARDIAL ISCHAEMIA
  19. COBICISTAT [Suspect]
     Active Substance: COBICISTAT
     Indication: HIV-ASSOCIATED NEUROCOGNITIVE DISORDER
  20. TENOFOVIR [Suspect]
     Active Substance: TENOFOVIR
     Indication: HIV-ASSOCIATED NEUROCOGNITIVE DISORDER

REACTIONS (20)
  - Pathogen resistance [Unknown]
  - Dysdiadochokinesis [Recovering/Resolving]
  - Magnetic resonance imaging head abnormal [Recovering/Resolving]
  - Confusional state [Recovering/Resolving]
  - Central nervous system inflammation [Recovering/Resolving]
  - Cerebellar syndrome [Not Recovered/Not Resolved]
  - Chorea [Recovered/Resolved]
  - Treatment noncompliance [Unknown]
  - Behaviour disorder [Not Recovered/Not Resolved]
  - Dysarthria [Recovering/Resolving]
  - Parainfluenzae virus infection [Unknown]
  - HIV-associated neurocognitive disorder [Recovering/Resolving]
  - Rhinitis [Unknown]
  - Viral mutation identified [Unknown]
  - Gait disturbance [Recovering/Resolving]
  - Loss of personal independence in daily activities [Recovering/Resolving]
  - Hypophagia [Recovering/Resolving]
  - Disorientation [Recovering/Resolving]
  - Meningitis viral [Unknown]
  - Meningoencephalitis viral [Unknown]

NARRATIVE: CASE EVENT DATE: 2012
